FAERS Safety Report 9769061 (Version 1)
Quarter: 2013Q4

REPORT INFORMATION
  Report Type: Spontaneous
  Country: US (occurrence: US)
  Receive Date: 20131218
  Receipt Date: 20131218
  Transmission Date: 20140711
  Serious: Yes (Hospitalization)
  Sender: FDA-Public Use
  Company Number: US-SA-2013SA131397

PATIENT
  Age: 66 Year
  Sex: Male

DRUGS (5)
  1. LANTUS [Suspect]
     Indication: DIABETES MELLITUS
     Route: 051
  2. NOVOLOG [Suspect]
     Indication: DIABETES MELLITUS
     Route: 065
  3. DASATINIB [Suspect]
     Indication: GLIOBLASTOMA MULTIFORME
     Dosage: TOTAL DOSE - 450 MG FOR 3 DAYS
     Route: 065
     Dates: start: 20130701, end: 20131013
  4. TEMOZOLOMIDE [Suspect]
     Indication: GLIOBLASTOMA MULTIFORME
     Dosage: LAST DATE ADMINISTERED ON 13-OCT-2013 AND 27-SEP-2013.
     Route: 065
     Dates: start: 20130923, end: 20130927
  5. BLINDED THERAPY [Suspect]
     Indication: GLIOBLASTOMA MULTIFORME
     Route: 065
     Dates: start: 20130701

REACTIONS (1)
  - Depressed level of consciousness [Recovered/Resolved]
